FAERS Safety Report 4620576-9 (Version None)
Quarter: 2005Q1

REPORT INFORMATION
  Report Type: 
  Country: None (occurrence: None)
  Receive Date: 20050324
  Receipt Date: 20050304
  Transmission Date: 20050727
  Serious: Yes (Hospitalization, Other)
  Sender: FDA-Public Use
  Company Number: USA050392430

PATIENT
  Age: 78 Year
  Sex: Male

DRUGS (4)
  1. ALIMTA [Suspect]
     Indication: MESOTHELIOMA
     Dosage: 500 MG/M2
  2. CARBOPLATIN [Concomitant]
  3. FOLIC ACID [Concomitant]
  4. VITAMIN B-12 [Concomitant]

REACTIONS (2)
  - SKIN DISCOLOURATION [None]
  - SKIN NECROSIS [None]
